FAERS Safety Report 5330820-0 (Version None)
Quarter: 2007Q2

REPORT INFORMATION
  Report Type: 
  Country: None (occurrence: None)
  Receive Date: 20070518
  Receipt Date: 20070518
  Transmission Date: 20071010
  Serious: No
  Sender: FDA-Public Use
  Company Number: None

PATIENT
  Sex: Male
  Weight: 80.2867 kg

DRUGS (1)
  1. PULMICORT [Suspect]
     Indication: DYSPNOEA
     Dosage: 200 MG BID 2PUFFS ORAL
     Route: 047
     Dates: start: 20061101

REACTIONS (3)
  - ARTHRALGIA [None]
  - MUSCLE SPASMS [None]
  - PAIN IN EXTREMITY [None]
